FAERS Safety Report 6568402-5 (Version None)
Quarter: 2010Q1

REPORT INFORMATION
  Report Type: 
  Country: None (occurrence: None)
  Receive Date: 20100128
  Receipt Date: 20100118
  Transmission Date: 20100710
  Serious: Yes (Hospitalization)
  Sender: FDA-Public Use
  Company Number: TCI2010A00117

PATIENT
  Age: 67 Year
  Sex: Female

DRUGS (11)
  1. ACTOS [Suspect]
     Indication: TYPE 2 DIABETES MELLITUS
     Dosage: 30 MG (30 MG, 1 IN 1 D) PER ORAL
     Route: 048
     Dates: start: 20051205, end: 20090827
  2. BASEN (VOGLIBOSE) [Concomitant]
  3. CRESTOR [Concomitant]
  4. AMLODIN OD (AMLODIPINE BESILATE) [Concomitant]
  5. TRICHLORMETHIAZIDE [Concomitant]
  6. AMARYL [Concomitant]
  7. DIOVAN [Concomitant]
  8. DEPAS (ETIZOLAM) [Concomitant]
  9. UROCALUN (SALICIN) [Concomitant]
  10. LIPITOR [Concomitant]
  11. NORVASC [Concomitant]

REACTIONS (13)
  - ARTHRALGIA [None]
  - BACK PAIN [None]
  - BONE FISSURE [None]
  - CONTUSION [None]
  - DIZZINESS POSTURAL [None]
  - FALL [None]
  - GLYCOSYLATED HAEMOGLOBIN INCREASED [None]
  - HAEMATURIA [None]
  - HEADACHE [None]
  - LUMBAR VERTEBRAL FRACTURE [None]
  - MUSCLE STRAIN [None]
  - MUSCULOSKELETAL PAIN [None]
  - NEPHROLITHIASIS [None]
